FAERS Safety Report 4675689-2 (Version None)
Quarter: 2005Q2

REPORT INFORMATION
  Report Type: 
  Country: None (occurrence: None)
  Receive Date: 20050527
  Receipt Date: 20050121
  Transmission Date: 20051028
  Serious: Yes (Disabling, Other)
  Sender: FDA-Public Use
  Company Number: US-BRISTOL-MYERS SQUIBB COMPANY-12835286

PATIENT
  Age: 49 Year
  Sex: Female

DRUGS (2)
  1. ERBITUX [Suspect]
     Indication: COLON CANCER
     Dosage: 3RD TREATMENT HELD
     Route: 042
     Dates: start: 20050106
  2. IRINOTECAN [Concomitant]

REACTIONS (1)
  - RASH PUSTULAR [None]
